FAERS Safety Report 5023669-X (Version None)
Quarter: 2006Q2

REPORT INFORMATION
  Report Type: 
  Country: None (occurrence: None)
  Receive Date: 20060428
  Receipt Date: 20060323
  Transmission Date: 20061013
  Serious: No
  Sender: FDA-Public Use
  Company Number: WAES 0603USA03907

PATIENT
  Age: 31 Year
  Sex: Female

DRUGS (6)
  1. EMEND [Suspect]
     Indication: PROPHYLAXIS OF NAUSEA AND VOMITING
     Dosage: 125 MG/1X/PO; SEE IMAGE
     Route: 048
     Dates: start: 20060101
  2. EMEND [Suspect]
     Indication: PROPHYLAXIS OF NAUSEA AND VOMITING
     Dosage: 125 MG/1X/PO; SEE IMAGE
     Route: 048
     Dates: start: 20060101
  3. EMEND [Suspect]
     Indication: PROPHYLAXIS OF NAUSEA AND VOMITING
     Dosage: 125 MG/1X/PO; SEE IMAGE
     Route: 048
     Dates: start: 20060101
  4. EMEND [Suspect]
     Indication: PROPHYLAXIS OF NAUSEA AND VOMITING
     Dosage: 125 MG/1X/PO; SEE IMAGE
     Route: 048
     Dates: start: 20060101
  5. ZOFRAN [Concomitant]
  6. CISPLATIN [Concomitant]

REACTIONS (2)
  - ADVERSE EVENT [None]
  - DIZZINESS [None]
